FAERS Safety Report 9034621 (Version 1)
Quarter: 2013Q1

REPORT INFORMATION
  Report Type: Spontaneous
  Country: US (occurrence: None)
  Receive Date: 20130116
  Receipt Date: 20130116
  Transmission Date: 20140127
  Serious: No
  Sender: FDA-Public Use
  Company Number: None

PATIENT
  Age: 56 Year
  Sex: Male

DRUGS (1)
  1. AUGMENTIN [Suspect]
     Indication: SINUSITIS
     Dates: start: 20110428, end: 20110507

REACTIONS (4)
  - Drug-induced liver injury [None]
  - Weight decreased [None]
  - Jaundice [None]
  - Cholestasis [None]
